FAERS Safety Report 24953909 (Version 1)
Quarter: 2025Q1

REPORT INFORMATION
  Report Type: Spontaneous
  Country: ZA (occurrence: ZA)
  Receive Date: 20250211
  Receipt Date: 20250211
  Transmission Date: 20250409
  Serious: Yes (Death, Hospitalization, Other)
  Sender: STRIDES
  Company Number: ZA-STRIDES ARCOLAB LIMITED-2025SP001770

PATIENT
  Age: 3 Year
  Sex: Male

DRUGS (9)
  1. AZITHROMYCIN [Suspect]
     Active Substance: AZITHROMYCIN
     Indication: Corynebacterium infection
     Route: 065
  2. AZITHROMYCIN [Suspect]
     Active Substance: AZITHROMYCIN
     Indication: Pneumonia
  3. AZITHROMYCIN [Suspect]
     Active Substance: AZITHROMYCIN
     Indication: Antibiotic therapy
  4. PREDNISOLONE [Suspect]
     Active Substance: PREDNISOLONE
     Indication: Respiratory distress
     Route: 065
  5. PREDNISOLONE [Suspect]
     Active Substance: PREDNISOLONE
     Indication: Stridor
  6. PREDNISOLONE [Suspect]
     Active Substance: PREDNISOLONE
     Indication: Wheezing
  7. ALBUTEROL [Concomitant]
     Active Substance: ALBUTEROL
     Indication: Upper airway obstruction
  8. EPINEPHRINE [Concomitant]
     Active Substance: EPINEPHRINE
     Indication: Upper airway obstruction
     Route: 065
  9. DIPHTHERIA ANTITOXIN [Concomitant]
     Active Substance: DIPHTHERIA ANTITOXIN
     Indication: Corynebacterium infection
     Route: 065

REACTIONS (5)
  - Organ failure [Fatal]
  - Respiratory failure [Fatal]
  - Respiratory acidosis [Unknown]
  - Drug ineffective [Unknown]
  - Off label use [Unknown]
